FAERS Safety Report 21776019 (Version 6)
Quarter: 2024Q2

REPORT INFORMATION
  Report Type: Spontaneous
  Country: CA (occurrence: CA)
  Receive Date: 20221226
  Receipt Date: 20240528
  Transmission Date: 20240716
  Serious: Yes (Other)
  Sender: FDA-Public Use
  Company Number: CA-CELLTRION INC.-2022CA021538

PATIENT

DRUGS (10)
  1. INFLECTRA [Suspect]
     Active Substance: INFLIXIMAB-DYYB
     Indication: Crohn^s disease
     Dosage: 700 MG, WEEK 0,2,6 THEN EVERY 8 WEEKS FOR 12 MONTHS
     Route: 042
     Dates: start: 20221201, end: 20230825
  2. INFLECTRA [Suspect]
     Active Substance: INFLIXIMAB-DYYB
     Dosage: 700 MG, WEEK 0,2,6 THEN EVERY 8 WEEKS
     Route: 042
     Dates: start: 20221215
  3. INFLECTRA [Suspect]
     Active Substance: INFLIXIMAB-DYYB
     Dosage: 700 MG, WEEK 0,2,6 THEN EVERY 8 WEEKS
     Route: 042
     Dates: start: 20221215
  4. INFLECTRA [Suspect]
     Active Substance: INFLIXIMAB-DYYB
     Dosage: 700 MG, WEEK 0,2,6 THEN EVERY 8 WEEKS
     Route: 042
     Dates: start: 20230113
  5. INFLECTRA [Suspect]
     Active Substance: INFLIXIMAB-DYYB
     Dosage: 700 MG, INDUCTION WEEKS 0,2,6 DOSE: 700 MGMAINTENANCE DOSE: 700 MG EVERY 8 WEEKS FOR 12 MONTHS
     Route: 042
     Dates: start: 20230825
  6. INFLECTRA [Suspect]
     Active Substance: INFLIXIMAB-DYYB
     Dosage: 1300 MG, EVERY 4 WEEK
     Route: 042
     Dates: start: 20230920
  7. INFLECTRA [Suspect]
     Active Substance: INFLIXIMAB-DYYB
     Dosage: 1300 MG, EVERY 4 WEEK
     Route: 042
     Dates: start: 20240405
  8. INFLECTRA [Suspect]
     Active Substance: INFLIXIMAB-DYYB
     Dosage: 1300 MG, AFTER 6 WEEKS (EVERY 4 WEEK )
     Route: 042
     Dates: start: 20240517
  9. CANDESARTAN [Concomitant]
     Active Substance: CANDESARTAN
     Indication: Hypotension
     Dosage: UNK
  10. METHOTREXATE [Concomitant]
     Active Substance: METHOTREXATE
     Dosage: 1 DF

REACTIONS (8)
  - Heart rate decreased [Unknown]
  - Cardiac pacemaker insertion [Unknown]
  - Fall [Not Recovered/Not Resolved]
  - Skin laceration [Unknown]
  - Headache [Unknown]
  - Blood pressure diastolic increased [Not Recovered/Not Resolved]
  - Off label use [Unknown]
  - Inappropriate schedule of product administration [Unknown]

NARRATIVE: CASE EVENT DATE: 20221213
